FAERS Safety Report 16314016 (Version 1)
Quarter: 2019Q2

REPORT INFORMATION
  Report Type: Spontaneous
  Country: US (occurrence: US)
  Receive Date: 20190514
  Receipt Date: 20190514
  Transmission Date: 20190711
  Serious: No
  Sender: FDA-Public Use
  Company Number: None

PATIENT
  Age: 69 Year
  Sex: Female
  Weight: 62.55 kg

DRUGS (1)
  1. IC BUPROPION HCL SR 150 MG [Suspect]
     Active Substance: BUPROPION HYDROCHLORIDE
     Indication: DEPRESSION
     Dosage: ?          QUANTITY:1 TABLET(S);?
     Route: 048
     Dates: start: 20190101

REACTIONS (6)
  - Headache [None]
  - Personality change [None]
  - Feeling abnormal [None]
  - Product substitution issue [None]
  - Mood altered [None]
  - Head discomfort [None]
